FAERS Safety Report 14619612 (Version 1)
Quarter: 2018Q1

REPORT INFORMATION
  Report Type: Spontaneous
  Country: DE (occurrence: DE)
  Receive Date: 20180309
  Receipt Date: 20180309
  Transmission Date: 20180509
  Serious: Yes (Other)
  Sender: FDA-Public Use
  Company Number: DE-TEVA-2018-DE-864250

PATIENT
  Age: 73 Year
  Sex: Female

DRUGS (3)
  1. LEVODOPA/CARBIDOPA/ENTACAPON ABZ 00 MG/50 MG/200 MG [Suspect]
     Active Substance: CARBIDOPA\ENTACAPONE\LEVODOPA
     Indication: PARKINSON^S DISEASE
     Dosage: 4 DOSAGE FORMS DAILY; 1 DOSAGE FORM IS 1 FILM COATED TABLET CONTAINS 200 MG LEVODOPA, 50 MG CARBIDOP
     Route: 048
     Dates: start: 201712
  2. MADOPAR 100/25 MG [Concomitant]
     Dosage: 1 TABLET CONTAINS 100 MG LEVODOPA AND 25 MG BENSERAZIDE
  3. SIFROL 1.05 MG AND 1.57 MG [Concomitant]

REACTIONS (6)
  - Parkinson^s disease [Not Recovered/Not Resolved]
  - Hypokinesia [Not Recovered/Not Resolved]
  - Malaise [Not Recovered/Not Resolved]
  - Tetany [Not Recovered/Not Resolved]
  - Muscular weakness [Not Recovered/Not Resolved]
  - Chills [Not Recovered/Not Resolved]
